FAERS Safety Report 8336890-X (Version None)
Quarter: 2012Q2

REPORT INFORMATION
  Report Type: 
  Country: None (occurrence: None)
  Receive Date: 20120504
  Receipt Date: 20120425
  Transmission Date: 20120825
  Serious: Yes (Hospitalization)
  Sender: FDA-Public Use
  Company Number: US-SANOFI-AVENTIS-2012SA029382

PATIENT
  Age: 59 Year
  Sex: Male

DRUGS (3)
  1. SOLOSTAR [Suspect]
     Indication: DIABETES MELLITUS
     Dates: start: 20090101
  2. LANTUS [Suspect]
     Indication: DIABETES MELLITUS
     Dosage: DOSE:50 UNIT(S)
     Route: 058
     Dates: start: 20090101
  3. HUMALOG [Suspect]
     Indication: DIABETES MELLITUS

REACTIONS (1)
  - VISION BLURRED [None]
